FAERS Safety Report 25844780 (Version 2)
Quarter: 2025Q3

REPORT INFORMATION
  Report Type: Report from Study
  Country: CN (occurrence: CN)
  Receive Date: 20250925
  Receipt Date: 20250929
  Transmission Date: 20251021
  Serious: Yes (Other)
  Sender: ROCHE
  Company Number: CN-ROCHE-10000394542

PATIENT
  Age: 54 Year
  Sex: Male

DRUGS (1)
  1. COLUMVI [Suspect]
     Active Substance: GLOFITAMAB-GXBM
     Indication: Diffuse large B-cell lymphoma
     Dosage: STRENGTH: 10 MG (10ML)/VIAL
     Route: 050
     Dates: start: 20250206

REACTIONS (2)
  - Hyperpyrexia [Recovering/Resolving]
  - Pneumonia [Recovered/Resolved]
